FAERS Safety Report 8795465 (Version 1)
Quarter: 2012Q4

REPORT INFORMATION
  Report Type: 
  Country: DE (occurrence: DE)
  Receive Date: 20120917
  Receipt Date: 20120917
  Transmission Date: 20130627
  Serious: Yes (Life-Threatening, Hospitalization)
  Sender: FDA-Public Use
  Company Number: DE-ROCHE-1124836

PATIENT
  Age: 86 Year
  Sex: Female

DRUGS (4)
  1. XELODA [Suspect]
     Indication: BREAST CANCER
     Route: 048
     Dates: end: 20120829
  2. BRIVUDINE [Suspect]
     Indication: HERPES ZOSTER
     Route: 048
     Dates: start: 20120820, end: 20120829
  3. LAPATINIB [Concomitant]
     Route: 048
  4. DEXAMETHASONE [Concomitant]
     Dosage: 7-0-7
     Route: 065

REACTIONS (6)
  - Leukopenia [Not Recovered/Not Resolved]
  - Thrombocytopenia [Not Recovered/Not Resolved]
  - Mucosal inflammation [Not Recovered/Not Resolved]
  - Diarrhoea [Not Recovered/Not Resolved]
  - Dehydration [Not Recovered/Not Resolved]
  - Bone marrow disorder [Not Recovered/Not Resolved]
